FAERS Safety Report 6897528-1 (Version None)
Quarter: 2010Q3

REPORT INFORMATION
  Report Type: 
  Country: None (occurrence: None)
  Receive Date: 20100802
  Receipt Date: 20070609
  Transmission Date: 20110219
  Serious: No
  Sender: FDA-Public Use
  Company Number: US-PFIZER INC-2007048260

PATIENT
  Sex: Female
  Weight: 54.545 kg

DRUGS (5)
  1. LYRICA [Suspect]
     Indication: HYPERTONIA
     Route: 048
     Dates: start: 20070607
  2. LYRICA [Suspect]
     Indication: DYSKINESIA
  3. ANTIHYPERTENSIVES [Concomitant]
     Indication: HYPERTENSION
  4. TRAZODONE [Concomitant]
  5. FIBRE, DIETARY [Concomitant]

REACTIONS (2)
  - DRUG EFFECT DECREASED [None]
  - HYPERTONIA [None]
